FAERS Safety Report 18038664 (Version 4)
Quarter: 2020Q3

REPORT INFORMATION
  Report Type: Spontaneous
  Country: US (occurrence: US)
  Receive Date: 20200717
  Receipt Date: 20200730
  Transmission Date: 20201103
  Serious: Yes (Other)
  Sender: FDA-Public Use
  Company Number: US-PFIZER INC-2020273350

PATIENT
  Age: 74 Year
  Sex: Female
  Weight: 55.34 kg

DRUGS (1)
  1. CHANTIX [Suspect]
     Active Substance: VARENICLINE TARTRATE
     Indication: SMOKING CESSATION THERAPY
     Dosage: UNK
     Dates: start: 2008

REACTIONS (4)
  - Disease recurrence [Unknown]
  - Cerebral arteriosclerosis [Unknown]
  - Ear pain [Recovered/Resolved]
  - Headache [Unknown]
